FAERS Safety Report 4957002-6 (Version None)
Quarter: 2006Q1

REPORT INFORMATION
  Report Type: 
  Country: None (occurrence: None)
  Receive Date: 20060127
  Receipt Date: 20050816
  Transmission Date: 20060701
  Serious: Yes (Hospitalization, Other)
  Sender: FDA-Public Use
  Company Number: 05-08-1450

PATIENT
  Age: 55 Year
  Sex: Male

DRUGS (3)
  1. CLOZAPINE [Suspect]
     Indication: BIPOLAR DISORDER
     Dosage: 175MG, QD, ORAL
     Route: 048
     Dates: start: 20010101, end: 20050801
  2. CLOZAPINE [Suspect]
     Indication: SCHIZOAFFECTIVE DISORDER
     Dosage: 175MG, QD, ORAL
     Route: 048
     Dates: start: 20010101, end: 20050801
  3. IMIPRAMINE HCL [Concomitant]

REACTIONS (1)
  - GRANULOCYTOPENIA [None]
